FAERS Safety Report 9711382 (Version 1)
Quarter: 2013Q4

REPORT INFORMATION
  Report Type: Spontaneous
  Country: US (occurrence: US)
  Receive Date: 20131126
  Receipt Date: 20131126
  Transmission Date: 20140711
  Serious: No
  Sender: FDA-Public Use
  Company Number: US-BRISTOL-MYERS SQUIBB COMPANY-19225572

PATIENT
  Age: 53 Year
  Sex: Female
  Weight: 99.77 kg

DRUGS (7)
  1. BYETTA [Suspect]
     Indication: TYPE 2 DIABETES MELLITUS
     Dosage: BYETTA 5 MCG TWICE DAILY,THEN 5MCG AT MORNING,10MCG AT NIGHT
     Route: 058
  2. METFORMIN HCL [Suspect]
  3. GLYBURIDE [Suspect]
  4. ENALAPRIL [Concomitant]
  5. MELOXICAM [Concomitant]
  6. METOPROLOL [Concomitant]
  7. HYDROCHLOROTHIAZIDE [Concomitant]
     Dosage: 1.5- DAILY

REACTIONS (2)
  - Blood glucose increased [Unknown]
  - Blood glucose fluctuation [Unknown]
